FAERS Safety Report 4839823-3 (Version None)
Quarter: 2005Q4

REPORT INFORMATION
  Report Type: 
  Country: None (occurrence: None)
  Receive Date: 20051129
  Receipt Date: 20051115
  Transmission Date: 20060501
  Serious: Yes (Other)
  Sender: FDA-Public Use
  Company Number: PHMT2005CA00629

PATIENT
  Age: 55 Year
  Sex: Female

DRUGS (3)
  1. TEGRETOL [Suspect]
     Dosage: 200 MG, QID
     Route: 048
     Dates: start: 20050118
  2. NEURONTIN [Concomitant]
  3. EFFEXOR [Concomitant]

REACTIONS (1)
  - HALLUCINATION [None]
